FAERS Safety Report 4851033-2 (Version None)
Quarter: 2005Q4

REPORT INFORMATION
  Report Type: 
  Country: None (occurrence: None)
  Receive Date: 20051212
  Receipt Date: 20051104
  Transmission Date: 20060501
  Serious: Yes (Death, Hospitalization)
  Sender: FDA-Public Use
  Company Number: US-MERCK-0511USA00834

PATIENT
  Age: 72 Year
  Sex: Female
  Weight: 68 kg

DRUGS (9)
  1. VIOXX [Suspect]
     Indication: OSTEOARTHRITIS
     Route: 048
     Dates: start: 20001022
  2. VIOXX [Suspect]
     Indication: PAIN IN EXTREMITY
     Route: 048
     Dates: start: 20001022
  3. GLUCOPHAGE [Concomitant]
     Route: 065
  4. COZAAR [Concomitant]
     Route: 048
  5. ADALAT [Concomitant]
     Route: 065
  6. DIABETA [Concomitant]
     Route: 065
  7. TRINALIN [Concomitant]
     Route: 065
  8. PROVENTIL [Concomitant]
     Route: 065
  9. SYNTHROID [Concomitant]
     Route: 065

REACTIONS (30)
  - ACUTE MYOCARDIAL INFARCTION [None]
  - ALOPECIA [None]
  - ANAEMIA [None]
  - ATELECTASIS [None]
  - ATRIAL FIBRILLATION [None]
  - BRADYCARDIA [None]
  - CAROTID ARTERY STENOSIS [None]
  - CEREBROVASCULAR ACCIDENT [None]
  - CONFUSIONAL STATE [None]
  - CONVULSION [None]
  - CORONARY ARTERY DISEASE [None]
  - COUGH [None]
  - DEPRESSION [None]
  - EMBOLIC STROKE [None]
  - GASTROINTESTINAL DISORDER [None]
  - GRAND MAL CONVULSION [None]
  - HAEMATEMESIS [None]
  - HAEMATOCHEZIA [None]
  - ILEUS [None]
  - NASOPHARYNGITIS [None]
  - NAUSEA [None]
  - PLEURAL EFFUSION [None]
  - PNEUMONIA ESCHERICHIA [None]
  - PULMONARY VALVE INCOMPETENCE [None]
  - RESPIRATORY FAILURE [None]
  - RETROPERITONEAL HAEMORRHAGE [None]
  - STAPHYLOCOCCAL BACTERAEMIA [None]
  - TRICUSPID VALVE INCOMPETENCE [None]
  - VOMITING [None]
  - WEIGHT DECREASED [None]
